APPROVED DRUG PRODUCT: FLUOCINONIDE EMULSIFIED BASE
Active Ingredient: FLUOCINONIDE
Strength: 0.05%
Dosage Form/Route: CREAM;TOPICAL
Application: A076586 | Product #001 | TE Code: AB2
Applicant: FOUGERA PHARMACEUTICALS INC
Approved: Jun 23, 2004 | RLD: No | RS: No | Type: RX